FAERS Safety Report 6862096-7 (Version None)
Quarter: 2010Q3

REPORT INFORMATION
  Report Type: 
  Country: None (occurrence: None)
  Receive Date: 20100721
  Receipt Date: 20100708
  Transmission Date: 20110219
  Serious: Yes (Hospitalization, Other)
  Sender: FDA-Public Use
  Company Number: US-ELI_LILLY_AND_COMPANY-US201007003399

PATIENT
  Sex: Female

DRUGS (4)
  1. CYMBALTA [Suspect]
     Dosage: 180 MG, DAILY (1/D)
     Dates: start: 20080101, end: 20100601
  2. PRILOSEC [Concomitant]
  3. LISINOPRIL [Concomitant]
  4. SIMVASTIN [Concomitant]
     Indication: HYPERCHOLESTEROLAEMIA

REACTIONS (3)
  - AFFECTIVE DISORDER [None]
  - OVERDOSE [None]
  - PLATELET COUNT DECREASED [None]
